FAERS Safety Report 6460082-2 (Version None)
Quarter: 2009Q4

REPORT INFORMATION
  Report Type: 
  Country: None (occurrence: None)
  Receive Date: 20091129
  Receipt Date: 20091123
  Transmission Date: 20100525
  Serious: Yes (Death, Other)
  Sender: FDA-Public Use
  Company Number: PHHY2009GR51495

PATIENT
  Age: 44 Year
  Sex: Male

DRUGS (4)
  1. CYCLOSPORINE [Suspect]
     Indication: RENAL TRANSPLANT
     Dosage: 8 MG/KG/DAY
  2. ANTILYMPHOCYTE GLOBULIN [Concomitant]
     Indication: RENAL TRANSPLANT
     Dosage: 1.5 MG/KG/DAY
  3. PREDNISOLONE [Concomitant]
     Indication: RENAL TRANSPLANT
     Dosage: 15 MG/DAY
  4. MYCOPHENOLATE MOFETIL [Concomitant]
     Indication: RENAL TRANSPLANT
     Dosage: 2G/DAY

REACTIONS (18)
  - ASPIRATION PLEURAL CAVITY [None]
  - CHEST TUBE INSERTION [None]
  - DYSPNOEA [None]
  - GASTROINTESTINAL TUBE INSERTION [None]
  - GENERAL PHYSICAL HEALTH DETERIORATION [None]
  - HYPERCAPNIA [None]
  - LUNG ABSCESS [None]
  - LUNG DISORDER [None]
  - LUNG INFILTRATION [None]
  - LUNG LOBECTOMY [None]
  - PLEURISY [None]
  - PNEUMOCYSTIS JIROVECI PNEUMONIA [None]
  - PNEUMOTHORAX [None]
  - PULMONARY CAVITATION [None]
  - PULMONARY HAEMORRHAGE [None]
  - PYREXIA [None]
  - THORACOTOMY [None]
  - TORSADE DE POINTES [None]
